FAERS Safety Report 19192730 (Version 5)
Quarter: 2021Q2

REPORT INFORMATION
  Report Type: Spontaneous
  Country: JP (occurrence: JP)
  Receive Date: 20210429
  Receipt Date: 20210615
  Transmission Date: 20210717
  Serious: Yes (Other)
  Sender: FDA-Public Use
  Company Number: JP-REGENERON PHARMACEUTICALS, INC.-2021-39955

PATIENT

DRUGS (7)
  1. EYLEA [Suspect]
     Active Substance: AFLIBERCEPT
     Indication: DIABETIC RETINAL OEDEMA
     Dosage: BOTH EYES,2MG
     Route: 031
     Dates: start: 20210219
  2. BRONUCK [Concomitant]
     Active Substance: BROMFENAC SODIUM
     Indication: CONJUNCTIVITIS
     Dosage: BOTH EYES, TWICE PER DAY
     Route: 031
     Dates: start: 20210129
  3. LATANOPROST. [Concomitant]
     Active Substance: LATANOPROST
     Indication: GLAUCOMA
     Dosage: RIGHT EYE, ONCE PER DAY
     Route: 031
     Dates: end: 20210327
  4. COSOPT [Concomitant]
     Active Substance: DORZOLAMIDE HYDROCHLORIDE\TIMOLOL MALEATE
     Indication: GLAUCOMA
     Dosage: BOTH EYES, TWICE PER DAY
     Route: 031
  5. DIQUAS [Concomitant]
     Active Substance: DIQUAFOSOL TETRASODIUM
     Indication: DRY EYE
     Dosage: BOTH EYES, SIX PER DAY
     Route: 031
     Dates: start: 20210507
  6. EYLEA [Suspect]
     Active Substance: AFLIBERCEPT
     Dosage: BOTH EYES, ONCE(0.05ML)
     Route: 031
     Dates: start: 20210326, end: 20210326
  7. EYLEA [Suspect]
     Active Substance: AFLIBERCEPT
     Dosage: BOTH EYES,2MG
     Route: 031
     Dates: start: 20210430

REACTIONS (5)
  - Device use issue [Recovered/Resolved]
  - Retinal artery occlusion [Recovering/Resolving]
  - Intraocular pressure increased [Unknown]
  - Retinal artery occlusion [Recovering/Resolving]
  - Inappropriate schedule of product administration [Unknown]

NARRATIVE: CASE EVENT DATE: 20210326
